FAERS Safety Report 17477242 (Version 3)
Quarter: 2020Q1

REPORT INFORMATION
  Report Type: Spontaneous
  Country: US (occurrence: US)
  Receive Date: 20200229
  Receipt Date: 20200318
  Transmission Date: 20200409
  Serious: Yes (Other)
  Sender: FDA-Public Use
  Company Number: US-AUROBINDO-AUR-APL-2020-010300

PATIENT
  Sex: Male

DRUGS (6)
  1. VALSARTAN. [Suspect]
     Active Substance: VALSARTAN
     Indication: HYPERTENSION
     Dosage: 320 MILLIGRAM, ONCE A DAY
     Route: 065
     Dates: start: 20190412, end: 20190708
  2. ASPIRIN. [Concomitant]
     Active Substance: ASPIRIN
     Indication: HEART INJURY
     Dosage: 1 PILL PER DAY
     Route: 065
     Dates: start: 201601
  3. GLUCOSAMINE AND CHONDROITIN [Concomitant]
     Active Substance: CHONDROITIN SULFATE (BOVINE)\GLUCOSAMINE HYDROCHLORIDE
     Indication: ARTHRITIS
     Dosage: 2 PILLS PER DAY
     Route: 065
     Dates: start: 201601
  4. VALSARTAN + HIDROCLOROTIAZIDA MYLAN [Suspect]
     Active Substance: HYDROCHLOROTHIAZIDE\VALSARTAN
     Indication: HYPERTENSION
     Dosage: 320/25  ONCE DAILY
     Dates: start: 20141203, end: 201502
  5. VALSARTAN. [Suspect]
     Active Substance: VALSARTAN
     Indication: HYPERTENSION
     Dosage: 160 MILLIGRAM, TWO TIMES A DAY
     Dates: start: 20180403, end: 20180703
  6. VALSARTAN. [Suspect]
     Active Substance: VALSARTAN
     Indication: HYPERTENSION
     Dosage: 320 MILLIGRAM, ONCE A DAY
     Route: 065
     Dates: start: 20170718, end: 201709

REACTIONS (2)
  - Hepatic cancer [Unknown]
  - Oesophageal carcinoma [Unknown]

NARRATIVE: CASE EVENT DATE: 20190122
